FAERS Safety Report 12495225 (Version 1)
Quarter: 2016Q2

REPORT INFORMATION
  Report Type: Report from Study
  Country: US (occurrence: US)
  Receive Date: 20160624
  Receipt Date: 20160624
  Transmission Date: 20160815
  Serious: Yes (Hospitalization, Other)
  Sender: FDA-Public Use
  Company Number: US-AMGEN-USASL2016080236

PATIENT
  Age: 45 Year
  Sex: Male

DRUGS (1)
  1. ENBREL [Suspect]
     Active Substance: ETANERCEPT
     Indication: PSORIASIS
     Dosage: 50 MG, QWK
     Route: 065
     Dates: start: 2013

REACTIONS (3)
  - Thrombosis [Recovered/Resolved]
  - Road traffic accident [Recovered/Resolved]
  - Staphylococcal infection [Recovered/Resolved]

NARRATIVE: CASE EVENT DATE: 2013
